FAERS Safety Report 5941539-7 (Version None)
Quarter: 2008Q4

REPORT INFORMATION
  Report Type: 
  Country: None (occurrence: None)
  Receive Date: 20081104
  Receipt Date: 20081104
  Transmission Date: 20090506
  Serious: Yes (Death, Hospitalization)
  Sender: FDA-Public Use
  Company Number: None

PATIENT
  Sex: Female
  Weight: 65.9 kg

DRUGS (1)
  1. TEMOZOLOMIDE [Suspect]
     Dosage: 3960 MG

REACTIONS (17)
  - ASPIRATION [None]
  - CONFUSIONAL STATE [None]
  - CONVULSION [None]
  - COUGH [None]
  - DYSPNOEA [None]
  - ENCEPHALOMALACIA [None]
  - FALL [None]
  - HYPOTENSION [None]
  - HYPOXIA [None]
  - INTERVERTEBRAL DISC COMPRESSION [None]
  - LETHARGY [None]
  - LUNG INFILTRATION [None]
  - MENTAL IMPAIRMENT [None]
  - PNEUMOCYSTIS JIROVECI INFECTION [None]
  - PNEUMONIA [None]
  - URINARY INCONTINENCE [None]
  - WHITE BLOOD CELL COUNT DECREASED [None]
